FAERS Safety Report 4443316-5 (Version None)
Quarter: 2004Q3

REPORT INFORMATION
  Report Type: 
  Country: None (occurrence: None)
  Receive Date: 20040908
  Receipt Date: 20040827
  Transmission Date: 20050211
  Serious: Yes (Hospitalization)
  Sender: FDA-Public Use
  Company Number: US-JNJFOC-20040809598

PATIENT
  Age: 55 Year
  Sex: Male

DRUGS (1)
  1. DURAGESIC [Suspect]
     Route: 062

REACTIONS (5)
  - COMA [None]
  - HYPERSOMNIA [None]
  - MEDICATION ERROR [None]
  - PHARMACEUTICAL PRODUCT COMPLAINT [None]
  - SOMNOLENCE [None]
